FAERS Safety Report 6155322-3 (Version None)
Quarter: 2009Q2

REPORT INFORMATION
  Report Type: 
  Country: None (occurrence: None)
  Receive Date: 20090415
  Receipt Date: 20090410
  Transmission Date: 20091009
  Serious: Yes (Hospitalization)
  Sender: FDA-Public Use
  Company Number: US-B.I. PHARMACEUTICALS,INC./RIDGEFIELD-2009-BP-04557BP

PATIENT
  Sex: Female

DRUGS (6)
  1. MIRAPEX [Suspect]
     Indication: NEUROPATHY PERIPHERAL
     Dosage: .25MG
     Route: 048
     Dates: start: 20060101
  2. VICODIN [Concomitant]
     Indication: MYOPATHY
     Route: 048
  3. VALIUM [Concomitant]
     Indication: MYOPATHY
     Route: 048
  4. HUMALOG [Concomitant]
     Indication: TYPE 2 DIABETES MELLITUS
  5. LANTUS [Concomitant]
     Indication: TYPE 2 DIABETES MELLITUS
  6. GLIMEPIRIDE [Concomitant]
     Indication: TYPE 2 DIABETES MELLITUS

REACTIONS (2)
  - INTERVERTEBRAL DISC OPERATION [None]
  - PATHOLOGICAL GAMBLING [None]
